FAERS Safety Report 21633217 (Version 1)
Quarter: 2022Q4

REPORT INFORMATION
  Report Type: Spontaneous
  Country: US (occurrence: None)
  Receive Date: 20221122
  Receipt Date: 20221122
  Transmission Date: 20230112
  Serious: Yes (Hospitalization)
  Sender: FDA-Public Use
  Company Number: None

PATIENT
  Age: 63 Year
  Sex: Female

DRUGS (5)
  1. IMATINIB [Suspect]
     Active Substance: IMATINIB
     Indication: Gastrointestinal stromal tumour
     Dosage: TAKE 1 TABLET BY MOUTH DAILY WITH FOOD AND A LARGE GLASS OF WATER.TAKE FIRST DOSE WHEN DIRECTED BY ?
     Route: 048
     Dates: start: 20221025
  2. IBUPROFEN [Concomitant]
     Active Substance: IBUPROFEN
  3. LISINOPRIL [Concomitant]
     Active Substance: LISINOPRIL
  4. METFORMIN [Concomitant]
     Active Substance: METFORMIN HYDROCHLORIDE
  5. METOPROL SUC [Concomitant]

REACTIONS (7)
  - Renal disorder [None]
  - Immune-mediated adverse reaction [None]
  - Rash [None]
  - Diarrhoea [None]
  - Nausea [None]
  - Pyrexia [None]
  - Blood pressure measurement [None]

NARRATIVE: CASE EVENT DATE: 20221101
